FAERS Safety Report 10479265 (Version 1)
Quarter: 2014Q3

REPORT INFORMATION
  Report Type: Spontaneous
  Country: US (occurrence: US)
  Receive Date: 20140926
  Receipt Date: 20140926
  Transmission Date: 20150326
  Serious: Yes (Other)
  Sender: FDA-Public Use
  Company Number: US-ELI_LILLY_AND_COMPANY-US201409006920

PATIENT
  Sex: Male

DRUGS (7)
  1. WARFIN [Concomitant]
     Active Substance: WARFARIN
  2. CLOPIDOGREL [Concomitant]
     Active Substance: CLOPIDOGREL BISULFATE
  3. SIMVASTIN [Concomitant]
     Active Substance: SIMVASTATIN
  4. METOPROLOL [Concomitant]
     Active Substance: METOPROLOL
  5. AMLODIPINE [Concomitant]
     Active Substance: AMLODIPINE BESYLATE
  6. CIALIS [Suspect]
     Active Substance: TADALAFIL
     Indication: ERECTILE DYSFUNCTION
     Dosage: 20 MG, PRN
     Route: 065
     Dates: start: 2013
  7. PROPAFENONE. [Concomitant]
     Active Substance: PROPAFENONE

REACTIONS (2)
  - Deafness [Unknown]
  - Drug ineffective [Unknown]
